FAERS Safety Report 23499913 (Version 1)
Quarter: 2024Q1

REPORT INFORMATION
  Report Type: Spontaneous
  Country: US (occurrence: US)
  Receive Date: 20240208
  Receipt Date: 20240208
  Transmission Date: 20240409
  Serious: Yes (Other)
  Sender: FDA-Public Use
  Company Number: US-SPECGX-T202400577

PATIENT

DRUGS (1)
  1. METHADONE [Suspect]
     Active Substance: METHADONE HYDROCHLORIDE
     Indication: Product used for unknown indication
     Dosage: UNK
     Route: 065

REACTIONS (20)
  - Lower limb fracture [Unknown]
  - Limb operation [Unknown]
  - Suicidal ideation [Unknown]
  - Sleep apnoea syndrome [Unknown]
  - Drug dependence [Unknown]
  - Fluid retention [Unknown]
  - Peripheral swelling [Unknown]
  - Blister [Unknown]
  - Teeth brittle [Unknown]
  - Tooth injury [Unknown]
  - Tooth loss [Unknown]
  - Toothache [Unknown]
  - Urine output increased [Unknown]
  - Mouth injury [Unknown]
  - Abnormal loss of weight [Unknown]
  - Urine output decreased [Unknown]
  - Weight increased [Unknown]
  - Drug withdrawal syndrome [Unknown]
  - Dry mouth [Unknown]
  - Constipation [Unknown]
